FAERS Safety Report 5804648-9 (Version None)
Quarter: 2008Q3

REPORT INFORMATION
  Report Type: 
  Country: None (occurrence: None)
  Receive Date: 20080709
  Receipt Date: 20080630
  Transmission Date: 20090109
  Serious: Yes (Death)
  Sender: FDA-Public Use
  Company Number: IN-ELI_LILLY_AND_COMPANY-IN200806006497

PATIENT
  Age: 30 Year
  Sex: Male

DRUGS (1)
  1. XIGRIS [Suspect]
     Indication: SALMONELLA SEPSIS
     Dosage: UNK, UNKNOWN
     Route: 042
     Dates: start: 20080601

REACTIONS (1)
  - DEATH [None]
